FAERS Safety Report 10801405 (Version 1)
Quarter: 2015Q1

REPORT INFORMATION
  Report Type: Spontaneous
  Country: CM (occurrence: CM)
  Receive Date: 20150217
  Receipt Date: 20150217
  Transmission Date: 20150721
  Serious: Yes (Life-Threatening, Hospitalization, Other)
  Sender: FDA-Public Use
  Company Number: CM-009507513-1502CMR003944

PATIENT
  Age: 49 Year
  Sex: Male
  Weight: 58 kg

DRUGS (2)
  1. MECTIZAN [Suspect]
     Active Substance: IVERMECTIN
     Indication: FILARIASIS LYMPHATIC
     Dosage: 4 TABLETS, ONCE
     Route: 048
     Dates: start: 20140630
  2. ALBENDAZOLE [Suspect]
     Active Substance: ALBENDAZOLE
     Indication: FILARIASIS LYMPHATIC
     Dosage: 1 TABLET, ONCE
     Route: 048
     Dates: start: 20140630

REACTIONS (4)
  - Encephalopathy [Recovered/Resolved]
  - Conjunctival haemorrhage [Recovered/Resolved]
  - Altered state of consciousness [Recovered/Resolved]
  - Asthenia [Recovered/Resolved]

NARRATIVE: CASE EVENT DATE: 20140630
